FAERS Safety Report 5710053-6 (Version None)
Quarter: 2008Q2

REPORT INFORMATION
  Report Type: 
  Country: None (occurrence: None)
  Receive Date: 20080418
  Receipt Date: 20070820
  Transmission Date: 20081010
  Serious: No
  Sender: FDA-Public Use
  Company Number: US-ASTRAZENECA-2007UW19994

PATIENT
  Age: 54 Year
  Sex: Male
  Weight: 85.3 kg

DRUGS (3)
  1. TOPROL-XL [Suspect]
     Indication: HYPERTENSION
     Route: 048
     Dates: start: 20030101
  2. DIOVAN [Concomitant]
  3. RANITIDINE [Concomitant]

REACTIONS (7)
  - CHEST PAIN [None]
  - DYSPNOEA [None]
  - HEADACHE [None]
  - NIGHTMARE [None]
  - PANIC ATTACK [None]
  - VISION BLURRED [None]
  - WEIGHT INCREASED [None]
